FAERS Safety Report 19052140 (Version 1)
Quarter: 2021Q1

REPORT INFORMATION
  Report Type: Spontaneous
  Country: BR (occurrence: BR)
  Receive Date: 20210324
  Receipt Date: 20210324
  Transmission Date: 20210420
  Serious: Yes (Other)
  Sender: FDA-Public Use
  Company Number: BR-PFIZER INC-2021294899

PATIENT
  Age: 71 Year
  Sex: Female

DRUGS (2)
  1. XALATAN [Suspect]
     Active Substance: LATANOPROST
     Indication: GLAUCOMA
     Dosage: UNK
  2. HYABAK [ACTINOQUINOL;HYALURONATE SODIUM] [Concomitant]
     Dosage: UNK, DAILY (1 OR 2 TIMES A DAY)

REACTIONS (1)
  - Cerebrovascular accident [Unknown]
